FAERS Safety Report 20624016 (Version 2)
Quarter: 2022Q1

REPORT INFORMATION
  Report Type: Report from Study
  Country: US (occurrence: US)
  Receive Date: 20220322
  Receipt Date: 20220325
  Transmission Date: 20220423
  Serious: Yes (Other)
  Sender: FDA-Public Use
  Company Number: US-JAZZ-2021-US-026921

PATIENT
  Age: 50 Year
  Sex: Female

DRUGS (19)
  1. XYREM [Suspect]
     Active Substance: SODIUM OXYBATE
     Indication: Narcolepsy
     Dosage: 2.25 GRAM, BID
     Route: 048
     Dates: start: 200510, end: 200512
  2. XYREM [Suspect]
     Active Substance: SODIUM OXYBATE
     Indication: Cataplexy
     Dosage: DOSE ADJUSTMENT
     Route: 048
     Dates: start: 200512, end: 202103
  3. XYREM [Suspect]
     Active Substance: SODIUM OXYBATE
     Indication: Somnolence
     Dosage: 3.5 GRAM, BID
     Route: 048
     Dates: start: 202103
  4. ARTIFICIAL TEAR [HYPROMELLOSE] [Concomitant]
     Dosage: 0000
     Dates: start: 20131101
  5. MODAFINIL [Concomitant]
     Active Substance: MODAFINIL
     Dosage: 0000
     Dates: start: 20141008
  6. LIDODERM [Concomitant]
     Active Substance: LIDOCAINE
     Dosage: 0000
     Dates: start: 20150806
  7. VITAMIN D3 [Concomitant]
     Active Substance: CHOLECALCIFEROL
     Dosage: 0000
     Dates: start: 20150806
  8. PROAIR HFA [Concomitant]
     Active Substance: ALBUTEROL SULFATE
     Dosage: 0000
     Dates: start: 20150813
  9. GABAPENTIN [Concomitant]
     Active Substance: GABAPENTIN
     Dosage: 0000
     Dates: start: 20180204
  10. EMERGEN C IMMUNE PLUS WITH VITAMIN D [Concomitant]
     Dosage: 0000
     Dates: start: 20190301
  11. OCREVUS [Concomitant]
     Active Substance: OCRELIZUMAB
     Dosage: 0000
     Dates: start: 20191201
  12. LEXAPRO [Concomitant]
     Active Substance: ESCITALOPRAM OXALATE
     Dosage: 0000
     Dates: start: 20190610
  13. MEDROL COMP [Concomitant]
     Dosage: 0000
     Dates: start: 20201212
  14. ASMANEX [Concomitant]
     Active Substance: MOMETASONE FUROATE
     Dosage: 0000
     Dates: start: 20201120
  15. PANTOPRAZOLE SODIUM [Concomitant]
     Active Substance: PANTOPRAZOLE SODIUM
     Dosage: 0000
     Dates: start: 20201209
  16. BIFIDOBACTERIUM ANIMALIS LACTIS [Concomitant]
     Active Substance: BIFIDOBACTERIUM ANIMALIS LACTIS
     Dosage: UNK
     Dates: start: 20190423
  17. BIFIDOBACTERIUM ANIMALIS LACTIS [Concomitant]
     Active Substance: BIFIDOBACTERIUM ANIMALIS LACTIS
     Dosage: 0000
     Dates: start: 20190423
  18. VITAMINS [Concomitant]
     Active Substance: VITAMINS
     Dosage: 0000
     Dates: start: 20150813
  19. MAGNESIUM CITRATE [Concomitant]
     Active Substance: MAGNESIUM CITRATE
     Dosage: UNK
     Dates: start: 20150401

REACTIONS (7)
  - Spinal cord injury [Unknown]
  - Multiple sclerosis [Unknown]
  - Cerebral atrophy [Not Recovered/Not Resolved]
  - Inflammation [Unknown]
  - Cataract [Recovered/Resolved]
  - Anxiety [Unknown]
  - Product administration interrupted [Unknown]

NARRATIVE: CASE EVENT DATE: 20210401
